FAERS Safety Report 6805118-1 (Version None)
Quarter: 2010Q2

REPORT INFORMATION
  Report Type: 
  Country: None (occurrence: None)
  Receive Date: 20100628
  Receipt Date: 20070827
  Transmission Date: 20101027
  Serious: No
  Sender: FDA-Public Use
  Company Number: US-PFIZER INC-2007072388

PATIENT
  Sex: Female
  Weight: 61.23 kg

DRUGS (2)
  1. RELPAX [Suspect]
     Indication: MIGRAINE
     Dates: start: 20070701
  2. ALTACE [Concomitant]

REACTIONS (2)
  - HOT FLUSH [None]
  - HYPERHIDROSIS [None]
